FAERS Safety Report 13196553 (Version 1)
Quarter: 2017Q1

REPORT INFORMATION
  Report Type: Spontaneous
  Country: US (occurrence: US)
  Receive Date: 20170207
  Receipt Date: 20170207
  Transmission Date: 20170428
  Serious: Yes (Other)
  Sender: FDA-Public Use
  Company Number: None

PATIENT
  Age: 61 Year
  Sex: Female
  Weight: 58.5 kg

DRUGS (3)
  1. PICATO [Suspect]
     Active Substance: INGENOL MEBUTATE
     Indication: SKIN DISORDER
     Route: 061
     Dates: start: 20170201, end: 20170203
  2. ESTROGENS [Concomitant]
     Active Substance: ESTROGENS
  3. IBUPROFEN. [Concomitant]
     Active Substance: IBUPROFEN

REACTIONS (2)
  - Rash vesicular [None]
  - Eye swelling [None]

NARRATIVE: CASE EVENT DATE: 20170204
